FAERS Safety Report 6061225-5 (Version None)
Quarter: 2009Q1

REPORT INFORMATION
  Report Type: 
  Country: None (occurrence: None)
  Receive Date: 20090202
  Receipt Date: 20090128
  Transmission Date: 20090719
  Serious: Yes (Other)
  Sender: FDA-Public Use
  Company Number: JP-BAYER-200810040BYL

PATIENT
  Age: 68 Year
  Sex: Male

DRUGS (1)
  1. ASPIRIN [Suspect]
     Route: 048

REACTIONS (2)
  - GASTROINTESTINAL DISORDER [None]
  - GASTROINTESTINAL HAEMORRHAGE [None]
